FAERS Safety Report 19087618 (Version 3)
Quarter: 2021Q3

REPORT INFORMATION
  Report Type: Report from Study
  Country: US (occurrence: US)
  Receive Date: 20210402
  Receipt Date: 20210818
  Transmission Date: 20211014
  Serious: Yes (Hospitalization, Other)
  Sender: FDA-Public Use
  Company Number: US-SHIRE-US201915280

PATIENT
  Age: 66 Year
  Sex: Male

DRUGS (1)
  1. HUMAN IMMUNOGLOBULIN; HYALURONIDASE [Suspect]
     Active Substance: HUMAN IMMUNOGLOBULIN G\HYALURONIDASE RECOMBINANT HUMAN
     Indication: IMMUNODEFICIENCY COMMON VARIABLE
     Dosage: 35 GRAM, Q4WEEKS
     Route: 065

REACTIONS (12)
  - Abdominal distension [Unknown]
  - Chronic obstructive pulmonary disease [Unknown]
  - Cataract [Unknown]
  - Multiple allergies [Unknown]
  - Glaucoma [Unknown]
  - Dyspnoea [Unknown]
  - Respiratory disorder [Unknown]
  - Diplopia [Unknown]
  - Mycobacterium avium complex infection [Recovered/Resolved]
  - Sensitivity to weather change [Unknown]
  - Injection site pain [Unknown]
  - Anxiety [Unknown]

NARRATIVE: CASE EVENT DATE: 201812
